FAERS Safety Report 15058878 (Version 2)
Quarter: 2018Q3

REPORT INFORMATION
  Report Type: Spontaneous
  Country: US (occurrence: US)
  Receive Date: 20180625
  Receipt Date: 20180720
  Transmission Date: 20181010
  Serious: No
  Sender: FDA-Public Use
  Company Number: US-GLAXOSMITHKLINE-US2018111414

PATIENT
  Sex: Female

DRUGS (5)
  1. BREO ELLIPTA [Suspect]
     Active Substance: FLUTICASONE FUROATE\VILANTEROL TRIFENATATE
     Indication: ASTHMA
     Dosage: 1 PUFF(S), QD
     Route: 055
     Dates: start: 20180515
  2. MYRBETRIQ [Concomitant]
     Active Substance: MIRABEGRON
  3. VITAMIN C [Concomitant]
     Active Substance: ASCORBIC ACID
  4. MUCINEX [Concomitant]
     Active Substance: GUAIFENESIN
  5. SPIRONOLACTONE. [Concomitant]
     Active Substance: SPIRONOLACTONE

REACTIONS (6)
  - Drug ineffective [Unknown]
  - Wrong technique in device usage process [Unknown]
  - Rhinorrhoea [Unknown]
  - Oropharyngeal pain [Not Recovered/Not Resolved]
  - Upper respiratory tract infection [Unknown]
  - Cough [Unknown]
